FAERS Safety Report 7590968-7 (Version None)
Quarter: 2011Q3

REPORT INFORMATION
  Report Type: 
  Country: None (occurrence: None)
  Receive Date: 20110705
  Receipt Date: 20110629
  Transmission Date: 20111222
  Serious: Yes (Death, Other)
  Sender: FDA-Public Use
  Company Number: PHHY2010MX53817

PATIENT
  Sex: Female
  Weight: 58 kg

DRUGS (4)
  1. DIOVAN [Suspect]
     Indication: HYPERTENSION
     Dosage: 1 OR HALF TABLET OF 80 MG DAILY
     Route: 048
     Dates: start: 20040101
  2. DIOVAN HCT [Suspect]
     Indication: HYPERTENSION
     Dosage: 1 DF, DAILY
     Route: 048
     Dates: start: 20040101
  3. OMEPRAZOLE [Concomitant]
     Dosage: 2 DF, UNK
     Route: 048
     Dates: start: 20100101
  4. ASPIRIN [Concomitant]
     Dosage: 1 DF, UNK
     Route: 048
     Dates: start: 20040101

REACTIONS (7)
  - BLOOD PRESSURE INADEQUATELY CONTROLLED [None]
  - QUALITY OF LIFE DECREASED [None]
  - BLOOD PRESSURE INCREASED [None]
  - FALL [None]
  - CARDIAC ARREST [None]
  - HIP FRACTURE [None]
  - WRONG TECHNIQUE IN DRUG USAGE PROCESS [None]
